FAERS Safety Report 5099547-7 (Version None)
Quarter: 2006Q3

REPORT INFORMATION
  Report Type: 
  Country: None (occurrence: None)
  Receive Date: 20060908
  Receipt Date: 20060825
  Transmission Date: 20061208
  Serious: Yes (Hospitalization)
  Sender: FDA-Public Use
  Company Number: FRWYE784825AUG06

PATIENT
  Age: 39 Year
  Sex: Male

DRUGS (1)
  1. ENBREL [Suspect]
     Indication: SPONDYLOARTHROPATHY
     Dosage: UNKNOWN
     Route: 058
     Dates: start: 20040101, end: 20060101

REACTIONS (4)
  - ASCITES [None]
  - CONDITION AGGRAVATED [None]
  - GASTRIC CANCER [None]
  - HEPATIC CIRRHOSIS [None]
